FAERS Safety Report 8538530-3 (Version None)
Quarter: 2012Q3

REPORT INFORMATION
  Report Type: 
  Country: None (occurrence: None)
  Receive Date: 20120726
  Receipt Date: 20120710
  Transmission Date: 20120928
  Serious: Yes (Other)
  Sender: FDA-Public Use
  Company Number: US-JNJFOC-20120712438

PATIENT
  Sex: Female
  Weight: 85.73 kg

DRUGS (2)
  1. XARELTO [Suspect]
     Route: 048
     Dates: start: 20120702, end: 20120701
  2. XARELTO [Suspect]
     Indication: ANTICOAGULANT THERAPY
     Route: 048
     Dates: start: 20120701

REACTIONS (3)
  - CONTUSION [None]
  - INTERCEPTED MEDICATION ERROR [None]
  - CARDIOVERSION [None]
